FAERS Safety Report 11800515 (Version 10)
Quarter: 2020Q2

REPORT INFORMATION
  Report Type: Spontaneous
  Country: FR (occurrence: FR)
  Receive Date: 20151203
  Receipt Date: 20200606
  Transmission Date: 20200713
  Serious: Yes (Disabling, Congenital Anomaly, Other)
  Sender: FDA-Public Use
  Company Number: FR-ABBVIE-15P-056-1512728-00

PATIENT
  Sex: Male

DRUGS (10)
  1. METHYLPHENIDATE. [Concomitant]
     Active Substance: METHYLPHENIDATE
     Indication: PSYCHOMOTOR HYPERACTIVITY
     Dates: start: 20130730
  2. KEPPRA [Concomitant]
     Active Substance: LEVETIRACETAM
     Indication: PRODUCT USED FOR UNKNOWN INDICATION
  3. METHYLPHENIDATE. [Concomitant]
     Active Substance: METHYLPHENIDATE
     Indication: ATTENTION DEFICIT HYPERACTIVITY DISORDER
     Dates: start: 201403
  4. CONCERTA [Concomitant]
     Active Substance: METHYLPHENIDATE HYDROCHLORIDE
     Indication: PRODUCT USED FOR UNKNOWN INDICATION
     Dates: start: 201502
  5. ZONEGRAN [Concomitant]
     Active Substance: ZONISAMIDE
     Indication: PRODUCT USED FOR UNKNOWN INDICATION
  6. SPECIAFOLDINE [Concomitant]
     Active Substance: FOLIC ACID
     Indication: PRODUCT USED FOR UNKNOWN INDICATION
  7. RISPERDAL [Concomitant]
     Active Substance: RISPERIDONE
     Indication: PRODUCT USED FOR UNKNOWN INDICATION
     Dates: start: 201408
  8. RITALINE [Concomitant]
     Active Substance: METHYLPHENIDATE HYDROCHLORIDE
     Indication: PRODUCT USED FOR UNKNOWN INDICATION
     Dates: start: 201502
  9. MELATONINE [Concomitant]
     Active Substance: MELATONIN
     Indication: PRODUCT USED FOR UNKNOWN INDICATION
     Dates: start: 201512
  10. DEPAKINE [Suspect]
     Active Substance: VALPROATE SODIUM
     Indication: MATERNAL EXPOSURE TIMING UNSPECIFIED
     Route: 064

REACTIONS (33)
  - Dysmorphism [Unknown]
  - Nose deformity [Unknown]
  - Hypertelorism of orbit [Unknown]
  - Impulsive behaviour [Unknown]
  - Foetal heart rate abnormal [Unknown]
  - Oropharyngeal discomfort [Unknown]
  - Ear disorder [Unknown]
  - Learning disorder [Unknown]
  - Attention deficit hyperactivity disorder [Not Recovered/Not Resolved]
  - Behaviour disorder [Not Recovered/Not Resolved]
  - Low set ears [Unknown]
  - Dyspraxia [Unknown]
  - Skull malformation [Unknown]
  - Cognitive disorder [Unknown]
  - Cerebellar syndrome [Unknown]
  - Foot deformity [Unknown]
  - Psychomotor retardation [Recovering/Resolving]
  - Speech disorder [Unknown]
  - Balance disorder [Unknown]
  - Tic [Unknown]
  - Psychomotor skills impaired [Unknown]
  - Fine motor skill dysfunction [Unknown]
  - Developmental delay [Unknown]
  - Constipation [Unknown]
  - Anxiety [Unknown]
  - Tourette^s disorder [Not Recovered/Not Resolved]
  - Congenital hand malformation [Unknown]
  - Visuospatial deficit [Unknown]
  - Mental impairment [Unknown]
  - Musculoskeletal disorder [Unknown]
  - Nasal disorder [Unknown]
  - Enuresis [Unknown]
  - Foetal exposure during pregnancy [Unknown]

NARRATIVE: CASE EVENT DATE: 201005
